FAERS Safety Report 24896037 (Version 2)
Quarter: 2025Q2

REPORT INFORMATION
  Report Type: Report from Study
  Country: CA (occurrence: CA)
  Receive Date: 20250128
  Receipt Date: 20250515
  Transmission Date: 20250716
  Serious: Yes (Other)
  Sender: TAKEDA
  Company Number: CA-TAKEDA-2024TUS104831

PATIENT
  Sex: Male

DRUGS (8)
  1. FRUQUINTINIB [Suspect]
     Active Substance: FRUQUINTINIB
     Indication: Colorectal cancer metastatic
  2. FRUQUINTINIB [Suspect]
     Active Substance: FRUQUINTINIB
  3. FRUQUINTINIB [Suspect]
     Active Substance: FRUQUINTINIB
  4. RAMIPRIL [Concomitant]
     Active Substance: RAMIPRIL
  5. ASPIRIN [Concomitant]
     Active Substance: ASPIRIN
  6. VITAMIN D3 [Concomitant]
     Active Substance: CHOLECALCIFEROL
  7. METOCLOPRAMIDE [Concomitant]
     Active Substance: METOCLOPRAMIDE
  8. LOPERAMIDE [Concomitant]
     Active Substance: LOPERAMIDE

REACTIONS (9)
  - Terminal state [Unknown]
  - Colorectal cancer metastatic [Unknown]
  - Dyspnoea [Unknown]
  - Chest pain [Unknown]
  - Nausea [Unknown]
  - Pain [Unknown]
  - Fatigue [Unknown]
  - Hypertension [Unknown]
  - Decreased appetite [Unknown]
